FAERS Safety Report 20977074 (Version 1)
Quarter: 2022Q2

REPORT INFORMATION
  Report Type: Spontaneous
  Country: US (occurrence: US)
  Receive Date: 20220617
  Receipt Date: 20220617
  Transmission Date: 20220721
  Serious: Yes (Life-Threatening, Other)
  Sender: FDA-Public Use
  Company Number: US-NAPPMUNDI-GBR-2022-0098889

PATIENT
  Age: 74 Year
  Sex: Male

DRUGS (25)
  1. BUPRENORPHINE [Interacting]
     Active Substance: BUPRENORPHINE
     Indication: Local anaesthesia
     Dosage: 300 MICROGRAM
     Route: 065
  2. HYDROMORPHONE HYDROCHLORIDE [Interacting]
     Active Substance: HYDROMORPHONE HYDROCHLORIDE
     Indication: Induction of anaesthesia
     Dosage: 0.5 MILLIGRAM
     Route: 065
  3. PROPOFOL [Interacting]
     Active Substance: PROPOFOL
     Indication: Induction of anaesthesia
     Dosage: 120 MILLIGRAM
     Route: 065
  4. MIDAZOLAM [Interacting]
     Active Substance: MIDAZOLAM
     Indication: Analgesic therapy
     Dosage: 2 MILLIGRAM
     Route: 065
  5. MIDAZOLAM [Interacting]
     Active Substance: MIDAZOLAM
     Indication: Sedative therapy
  6. FENTANYL [Interacting]
     Active Substance: FENTANYL
     Indication: Analgesic therapy
     Dosage: 100 MICROGRAM
     Route: 065
  7. FENTANYL [Interacting]
     Active Substance: FENTANYL
     Indication: Sedative therapy
  8. PREGABALIN [Interacting]
     Active Substance: PREGABALIN
     Indication: Fibromyalgia
     Dosage: 150 MILLIGRAM
     Route: 065
  9. PREGABALIN [Interacting]
     Active Substance: PREGABALIN
     Indication: Preoperative care
     Dosage: 150 MILLIGRAM, TID
     Route: 065
  10. KETAMINE [Concomitant]
     Active Substance: KETAMINE
     Indication: Induction of anaesthesia
     Dosage: 30 MILLIGRAM
     Route: 065
  11. KETAMINE [Concomitant]
     Active Substance: KETAMINE
     Dosage: 20 MILLIGRAM
     Route: 065
  12. LIDOCAINE [Concomitant]
     Active Substance: LIDOCAINE
     Indication: Induction of anaesthesia
     Dosage: 100 MILLIGRAM
     Route: 065
  13. ROCURONIUM [Concomitant]
     Active Substance: ROCURONIUM BROMIDE
     Indication: Induction of anaesthesia
     Dosage: 20 MILLIGRAM
     Route: 065
  14. ROCURONIUM [Concomitant]
     Active Substance: ROCURONIUM BROMIDE
     Dosage: 5 MILLIGRAM [DEFASCICULATING DOSE]
     Route: 065
  15. SUCCINYLCHOLINE [Concomitant]
     Active Substance: SUCCINYLCHOLINE
     Indication: Induction of anaesthesia
     Dosage: 140 MILLIGRAM
     Route: 065
  16. PHENYLEPHRINE [Concomitant]
     Active Substance: PHENYLEPHRINE HYDROCHLORIDE
     Dosage: UNK
     Route: 065
  17. ONDANSETRON [Concomitant]
     Active Substance: ONDANSETRON
     Dosage: 4 MILLIGRAM
     Route: 065
  18. BUPIVACAINE [Concomitant]
     Active Substance: BUPIVACAINE
     Indication: Local anaesthesia
     Dosage: 20 MILLILITER (0.1%)
     Route: 065
  19. CLONIDINE [Concomitant]
     Active Substance: CLONIDINE
     Indication: Local anaesthesia
     Dosage: 20 MICROGRAM
     Route: 065
  20. DEXAMETHASONE [Concomitant]
     Active Substance: DEXAMETHASONE
     Indication: Local anaesthesia
     Dosage: 1 MILLIGRAM
     Route: 065
  21. OMEPRAZOLE [Concomitant]
     Active Substance: OMEPRAZOLE
     Indication: Preoperative care
     Dosage: 20 MILLIGRAM
     Route: 065
  22. APREPITANT [Concomitant]
     Active Substance: APREPITANT
     Indication: Preoperative care
     Dosage: 40 MILLIGRAM
     Route: 065
  23. PERPHENAZINE [Concomitant]
     Active Substance: PERPHENAZINE
     Indication: Preoperative care
     Dosage: 4 MILLIGRAM
     Route: 065
  24. ACETAMINOPHEN [Concomitant]
     Active Substance: ACETAMINOPHEN
     Indication: Preoperative care
     Dosage: 1300 MILLIGRAM
     Route: 065
  25. SUGAMMADEX [Concomitant]
     Active Substance: SUGAMMADEX
     Indication: Neuromuscular blockade reversal
     Dosage: UNK
     Route: 065

REACTIONS (11)
  - Respiratory depression [Recovered/Resolved]
  - Bradypnoea [Recovered/Resolved]
  - Unresponsive to stimuli [Recovered/Resolved]
  - Hypoventilation [Recovered/Resolved]
  - Hypothermia [Recovered/Resolved]
  - Respiratory acidosis [Recovered/Resolved]
  - Drug interaction [Recovered/Resolved]
  - Hypercapnia [Recovered/Resolved]
  - Agitation [Recovered/Resolved]
  - Sedation [Recovered/Resolved]
  - Off label use [Recovered/Resolved]
